FAERS Safety Report 12928891 (Version 1)
Quarter: 2016Q4

REPORT INFORMATION
  Report Type: Spontaneous
  Country: US (occurrence: US)
  Receive Date: 20161110
  Receipt Date: 20161110
  Transmission Date: 20170207
  Serious: No
  Sender: FDA-Public Use
  Company Number: US-BEH-2016075191

PATIENT
  Age: 6 Year
  Sex: Male

DRUGS (1)
  1. HIZENTRA [Suspect]
     Active Substance: HUMAN IMMUNOGLOBULIN G
     Indication: BLOOD IMMUNOGLOBULIN A DECREASED
     Dosage: 3.5 G, 17.5 ML, EVERY 10 DAYS
     Route: 058
     Dates: start: 20140627

REACTIONS (2)
  - Pyrexia [Recovering/Resolving]
  - Influenza like illness [Recovering/Resolving]

NARRATIVE: CASE EVENT DATE: 20161030
